FAERS Safety Report 20582345 (Version 1)
Quarter: 2022Q1

REPORT INFORMATION
  Report Type: Spontaneous
  Country: TR (occurrence: TR)
  Receive Date: 20220311
  Receipt Date: 20220311
  Transmission Date: 20220423
  Serious: Yes (Death, Hospitalization, Other)
  Sender: FDA-Public Use
  Company Number: TR-AMGEN-TURSP2022038345

PATIENT
  Age: 73 Year
  Sex: Male

DRUGS (7)
  1. FILGRASTIM [Suspect]
     Active Substance: FILGRASTIM
     Indication: Neutropenia
     Dosage: 48 MILLI-INTERNATIONAL UNIT
     Route: 065
  2. FILGRASTIM [Suspect]
     Active Substance: FILGRASTIM
     Indication: Off label use
  3. ELTROMBOPAG [Concomitant]
     Active Substance: ELTROMBOPAG
     Dosage: 50 MILLIGRAM, QD
  4. AZACITIDINE [Concomitant]
     Active Substance: AZACITIDINE
     Dosage: 75 MILLIGRAM, QD
     Route: 058
  5. VANCOMYCIN [Concomitant]
     Active Substance: VANCOMYCIN
     Dosage: UNK
  6. MEROPENEM [Concomitant]
     Active Substance: MEROPENEM
     Dosage: UNK
  7. COLCHICINE [Concomitant]
     Active Substance: COLCHICINE
     Dosage: 0.6 MILLIGRAM, QD

REACTIONS (6)
  - Acute myeloid leukaemia [Fatal]
  - Sepsis [Fatal]
  - Crystal arthropathy [Unknown]
  - Drug effective for unapproved indication [Unknown]
  - Chondrocalcinosis [Unknown]
  - Off label use [Unknown]
